FAERS Safety Report 9827988 (Version 1)
Quarter: 2014Q1

REPORT INFORMATION
  Report Type: Spontaneous
  Country: US (occurrence: US)
  Receive Date: 20140117
  Receipt Date: 20140117
  Transmission Date: 20141002
  Serious: Yes (Hospitalization)
  Sender: FDA-Public Use
  Company Number: US-WATSON-2014-00107

PATIENT
  Age: 44 Year
  Sex: Male
  Weight: 75 kg

DRUGS (2)
  1. TESTOSTERONE CYPIONATE (WATSON LABORATORIES) [Suspect]
     Indication: BLOOD TESTOSTERONE DECREASED
     Dosage: 1 DF, Q2WEEKS
     Route: 030
     Dates: start: 20131222, end: 20131222
  2. TESTOSTERONE CYPIONATE (WATSON LABORATORIES) [Suspect]
     Dosage: 1 DF, Q2WEEKS
     Route: 030
     Dates: start: 20131027, end: 20131027

REACTIONS (3)
  - Application site abscess [Recovered/Resolved]
  - Application site abscess [Recovering/Resolving]
  - Application site pain [Recovered/Resolved]
